FAERS Safety Report 13351280 (Version 3)
Quarter: 2017Q2

REPORT INFORMATION
  Report Type: Spontaneous
  Country: US (occurrence: US)
  Receive Date: 20170320
  Receipt Date: 20170623
  Transmission Date: 20170830
  Serious: Yes (Other)
  Sender: FDA-Public Use
  Company Number: US-INTERPRAG-PM-OCA2017-00196

PATIENT

DRUGS (7)
  1. VITAMIN D [Concomitant]
     Active Substance: CHOLECALCIFEROL
     Dosage: UNK, BID
  2. URSODIOL. [Concomitant]
     Active Substance: URSODIOL
     Indication: BILIARY CIRRHOSIS PRIMARY
     Dosage: 600 MG, BID
     Route: 048
  3. MIDODRINE [Concomitant]
     Active Substance: MIDODRINE
     Dosage: 5 MG, TID
     Route: 048
  4. PANTOPRAZOLE [Concomitant]
     Active Substance: PANTOPRAZOLE
     Dosage: 20 MG, BID
     Route: 048
     Dates: end: 20170308
  5. OCALIVA [Suspect]
     Active Substance: OBETICHOLIC ACID
     Indication: BILIARY CIRRHOSIS PRIMARY
     Dosage: 5 MG, QD
     Route: 048
     Dates: start: 201702, end: 201703
  6. LACTULOSE. [Concomitant]
     Active Substance: LACTULOSE
     Indication: CONSTIPATION
     Dosage: 30 CC, TID
     Route: 048
  7. PRENATAL VITAMINS                  /07499601/ [Concomitant]
     Active Substance: VITAMINS
     Dosage: 1 VITAMIN, QD
     Route: 048

REACTIONS (14)
  - Model for end stage liver disease score increased [Not Recovered/Not Resolved]
  - Ascites [Recovered/Resolved]
  - Decreased appetite [Unknown]
  - Blood bilirubin increased [Not Recovered/Not Resolved]
  - Hepatic cirrhosis [Recovering/Resolving]
  - Blood albumin decreased [Not Recovered/Not Resolved]
  - Oedema peripheral [Recovered/Resolved]
  - Jaundice [Recovering/Resolving]
  - Muscle spasms [Recovered/Resolved]
  - Excoriation [Recovered/Resolved]
  - Abdominal distension [Recovered/Resolved]
  - Haematochezia [Recovered/Resolved]
  - Pruritus [Recovering/Resolving]
  - Abdominal pain [Recovered/Resolved]

NARRATIVE: CASE EVENT DATE: 201702
